FAERS Safety Report 8371016-8 (Version None)
Quarter: 2012Q2

REPORT INFORMATION
  Report Type: 
  Country: None (occurrence: None)
  Receive Date: 20120518
  Receipt Date: 20120508
  Transmission Date: 20120825
  Serious: Yes (Hospitalization)
  Sender: FDA-Public Use
  Company Number: US-JNJFOC-20120509776

PATIENT
  Sex: Female
  Weight: 44.4 kg

DRUGS (8)
  1. PREDNISONE [Concomitant]
  2. FOLIC ACID [Concomitant]
  3. ANTIBIOTICS [Concomitant]
  4. HUMIRA [Concomitant]
     Dates: start: 20110827
  5. NEXIUM [Concomitant]
  6. REMICADE [Suspect]
     Indication: CROHN'S DISEASE
     Route: 042
  7. METHOTREXATE [Concomitant]
  8. ELAVIL [Concomitant]

REACTIONS (4)
  - ANAEMIA [None]
  - WEIGHT DECREASED [None]
  - CLOSTRIDIUM DIFFICILE COLITIS [None]
  - CROHN'S DISEASE [None]
